FAERS Safety Report 8079310-5 (Version None)
Quarter: 2012Q1

REPORT INFORMATION
  Report Type: 
  Country: None (occurrence: None)
  Receive Date: 20120128
  Receipt Date: 20110822
  Transmission Date: 20120608
  Serious: No
  Sender: FDA-Public Use
  Company Number: US-ABBOTT-11P-163-0848321-00

PATIENT
  Sex: Female

DRUGS (12)
  1. VITAMIN D [Concomitant]
     Indication: VITAMIN SUPPLEMENTATION
  2. GABAPENTIN [Concomitant]
     Indication: PAIN
  3. TRAMADOL HCL [Concomitant]
     Indication: RHEUMATOID ARTHRITIS
     Dosage: ONE TAB EVERY FOUR HOURS OR AS NEEDED
  4. GABAPENTIN [Concomitant]
     Indication: RHEUMATOID ARTHRITIS
  5. NUVIGIL [Concomitant]
     Indication: SLEEP APNOEA SYNDROME
  6. NUVIGIL [Concomitant]
     Indication: NARCOLEPSY
  7. MORPHINE [Concomitant]
     Indication: RHEUMATOID ARTHRITIS
  8. HUMIRA [Suspect]
     Indication: RHEUMATOID ARTHRITIS
     Route: 058
     Dates: start: 20110201
  9. TRAMADOL HCL [Concomitant]
     Indication: PAIN
  10. XANAX [Concomitant]
     Indication: INSOMNIA
  11. MORPHINE [Concomitant]
     Indication: PAIN
  12. C PAP [Concomitant]
     Indication: SLEEP APNOEA SYNDROME
     Dosage: AT NIGHT

REACTIONS (8)
  - INJECTION SITE PRURITUS [None]
  - SKIN DISCOLOURATION [None]
  - DRUG INEFFECTIVE [None]
  - PAIN [None]
  - INJECTION SITE WARMTH [None]
  - ASTHENIA [None]
  - INJECTION SITE ERYTHEMA [None]
  - INJECTION SITE SWELLING [None]
